FAERS Safety Report 6024845-X (Version None)
Quarter: 2008Q4

REPORT INFORMATION
  Report Type: 
  Country: None (occurrence: None)
  Receive Date: 20081231
  Receipt Date: 20081224
  Transmission Date: 20090506
  Serious: Yes (Hospitalization)
  Sender: FDA-Public Use
  Company Number: US-JNJFOC-20081206829

PATIENT
  Sex: Male
  Weight: 92.53 kg

DRUGS (5)
  1. REMICADE [Suspect]
     Indication: CROHN'S DISEASE
     Route: 042
  2. COLOZAL [Concomitant]
     Indication: CROHN'S DISEASE
  3. ASPIRIN [Concomitant]
     Indication: CARDIAC DISORDER
  4. LIPITOR [Concomitant]
     Indication: BLOOD CHOLESTEROL
  5. XIFAXAN [Concomitant]
     Indication: CROHN'S DISEASE

REACTIONS (3)
  - ADVERSE DRUG REACTION [None]
  - PERICARDIAL EFFUSION [None]
  - VIRAL INFECTION [None]
